FAERS Safety Report 20834267 (Version 1)
Quarter: 2022Q2

REPORT INFORMATION
  Report Type: Spontaneous
  Country: US (occurrence: US)
  Receive Date: 20220516
  Receipt Date: 20220516
  Transmission Date: 20220721
  Serious: No
  Sender: FDA-Public Use
  Company Number: US-KYOWAKIRIN-2022BKK006969

PATIENT

DRUGS (2)
  1. CRYSVITA [Suspect]
     Active Substance: BUROSUMAB-TWZA
     Indication: Hereditary hypophosphataemic rickets
     Dosage: UNK UNK, 1X/MONTH
     Route: 065
  2. CRYSVITA [Suspect]
     Active Substance: BUROSUMAB-TWZA
     Dosage: 22 MG, 1X/WEEK
     Route: 058
     Dates: start: 20220201

REACTIONS (3)
  - Pain [Unknown]
  - Joint stiffness [Unknown]
  - Musculoskeletal stiffness [Recovered/Resolved]
